FAERS Safety Report 12156703 (Version 1)
Quarter: 2016Q1

REPORT INFORMATION
  Report Type: Spontaneous
  Country: ZA (occurrence: ZA)
  Receive Date: 20160307
  Receipt Date: 20160307
  Transmission Date: 20160526
  Serious: Yes (Hospitalization, Other)
  Sender: FDA-Public Use
  Company Number: ZA-MYLANLABS-2016M1009706

PATIENT

DRUGS (3)
  1. ZIDOVUDINE MYLAN [Suspect]
     Active Substance: ZIDOVUDINE
     Indication: ANTIRETROVIRAL THERAPY
     Dosage: 100 MG, UNK
     Route: 048
     Dates: start: 20080730, end: 20131230
  2. EFAVIRENZ MYLAN 600 MG COMPRIM?S PELLICUL?S [Suspect]
     Active Substance: EFAVIRENZ
     Indication: ANTIRETROVIRAL THERAPY
     Dosage: 600 MG, UNK
     Route: 048
     Dates: start: 20080730, end: 20131230
  3. LOPINAVIR [Suspect]
     Active Substance: LOPINAVIR
     Indication: ANTIRETROVIRAL THERAPY
     Dosage: 200 MG, UNK
     Route: 048
     Dates: start: 20080730, end: 20131230

REACTIONS (5)
  - Dizziness [Unknown]
  - Dyspnoea [Unknown]
  - Viral load [Unknown]
  - Anaemia [Unknown]
  - Blood creatine increased [Unknown]

NARRATIVE: CASE EVENT DATE: 20140410
